FAERS Safety Report 24551384 (Version 3)
Quarter: 2024Q4

REPORT INFORMATION
  Report Type: Report from Study
  Country: CA (occurrence: CA)
  Receive Date: 20241026
  Receipt Date: 20241112
  Transmission Date: 20250114
  Serious: Yes (Other)
  Sender: ABBVIE
  Company Number: CA-ABBVIE-5760016

PATIENT
  Age: 73 Year
  Sex: Male

DRUGS (8)
  1. FOSCARBIDOPA\FOSLEVODOPA [Suspect]
     Active Substance: FOSCARBIDOPA\FOSLEVODOPA
     Indication: Parkinson^s disease
     Route: 058
     Dates: start: 20240502
  2. CLONAZEPAM [Concomitant]
     Active Substance: CLONAZEPAM
     Indication: Pain
  3. TRAZODONE [Concomitant]
     Active Substance: TRAZODONE HYDROCHLORIDE
     Indication: Product used for unknown indication
     Dosage: EVERY BEDTIME
  4. ENTACAPONE [Concomitant]
     Active Substance: ENTACAPONE
     Indication: Product used for unknown indication
     Dosage: FREQUENCY TEXT: 5X/DAY
  5. LORAZEPAM [Concomitant]
     Active Substance: LORAZEPAM
     Indication: Product used for unknown indication
  6. XARELTO [Concomitant]
     Active Substance: RIVAROXABAN
     Indication: Product used for unknown indication
  7. Nutro patch [Concomitant]
     Indication: Product used for unknown indication
  8. CARBIDOPA AND LEVODOPA [Concomitant]
     Active Substance: CARBIDOPA\LEVODOPA
     Indication: Product used for unknown indication
     Dosage: 100/25 ,HALF TABLET,2 TABLETS  5X/DAY

REACTIONS (49)
  - Infection [Recovering/Resolving]
  - Injection site pain [Unknown]
  - Tremor [Recovering/Resolving]
  - Dyspnoea [Unknown]
  - Blood pressure increased [Recovered/Resolved]
  - Malaise [Unknown]
  - Tongue biting [Not Recovered/Not Resolved]
  - Pain [Not Recovered/Not Resolved]
  - Drooling [Not Recovered/Not Resolved]
  - Therapeutic product effect incomplete [Not Recovered/Not Resolved]
  - Movement disorder [Unknown]
  - Catheter placement [Unknown]
  - Bradykinesia [Unknown]
  - Freezing phenomenon [Not Recovered/Not Resolved]
  - Catheter site swelling [Not Recovered/Not Resolved]
  - Skin infection [Not Recovered/Not Resolved]
  - Pyrexia [Not Recovered/Not Resolved]
  - Blood pressure increased [Not Recovered/Not Resolved]
  - Injection site infection [Not Recovered/Not Resolved]
  - Abdominal pain [Not Recovered/Not Resolved]
  - Paraesthesia [Unknown]
  - Feeling abnormal [Not Recovered/Not Resolved]
  - Injection site discharge [Not Recovered/Not Resolved]
  - Choking [Not Recovered/Not Resolved]
  - Injection site haemorrhage [Not Recovered/Not Resolved]
  - Injection site erythema [Not Recovered/Not Resolved]
  - Anxiety [Not Recovered/Not Resolved]
  - Depression [Not Recovered/Not Resolved]
  - Ageusia [Not Recovered/Not Resolved]
  - Urinary tract infection [Unknown]
  - Injection site pain [Unknown]
  - Unevaluable event [Unknown]
  - Injection site discharge [Unknown]
  - Fall [Recovered/Resolved]
  - Hypoaesthesia [Unknown]
  - Injection site erythema [Unknown]
  - Skin reaction [Unknown]
  - Injection site papule [Unknown]
  - Grip strength decreased [Not Recovered/Not Resolved]
  - Erythema [Not Recovered/Not Resolved]
  - Tooth infection [Unknown]
  - COVID-19 [Unknown]
  - Conjunctivitis [Unknown]
  - Neuropathy peripheral [Unknown]
  - Gout [Unknown]
  - Limb discomfort [Unknown]
  - Urinary tract infection [Not Recovered/Not Resolved]
  - Mobility decreased [Not Recovered/Not Resolved]
  - General physical health deterioration [Unknown]

NARRATIVE: CASE EVENT DATE: 20240101
